FAERS Safety Report 20518458 (Version 1)
Quarter: 2022Q1

REPORT INFORMATION
  Report Type: Spontaneous
  Country: US (occurrence: US)
  Receive Date: 20220225
  Receipt Date: 20220225
  Transmission Date: 20220424
  Serious: No
  Sender: FDA-Public Use
  Company Number: US-SA-2022SA057861

PATIENT
  Age: 7 Year
  Sex: Female

DRUGS (1)
  1. AVALGLUCOSIDASE ALFA [Suspect]
     Active Substance: AVALGLUCOSIDASE ALFA

REACTIONS (1)
  - Drug specific antibody absent [Unknown]

NARRATIVE: CASE EVENT DATE: 20220203
